FAERS Safety Report 14800907 (Version 1)
Quarter: 2018Q2

REPORT INFORMATION
  Report Type: Spontaneous
  Country: FR (occurrence: FR)
  Receive Date: 20180424
  Receipt Date: 20180424
  Transmission Date: 20180711
  Serious: Yes (Hospitalization)
  Sender: FDA-Public Use
  Company Number: FR-MYLANLABS-2018M1017283

PATIENT
  Age: 37 Year
  Sex: Female

DRUGS (6)
  1. DECAPEPTYL                         /00486501/ [Concomitant]
     Active Substance: GONADORELIN
     Indication: PRODUCT USED FOR UNKNOWN INDICATION
     Dosage: 1 DF, MONTHLY
     Route: 030
  2. CRESTOR [Concomitant]
     Active Substance: ROSUVASTATIN CALCIUM
     Indication: PRODUCT USED FOR UNKNOWN INDICATION
     Dosage: 5 MG, UNK
  3. LETROZOLE. [Suspect]
     Active Substance: LETROZOLE
     Indication: BREAST CANCER
     Dosage: 2.5 MG, CYCLIC
     Route: 048
     Dates: start: 20171103
  4. PALBOCICLIB [Suspect]
     Active Substance: PALBOCICLIB
     Dosage: UNK
     Route: 048
  5. LEVOTHROID [Concomitant]
     Active Substance: LEVOTHYROXINE SODIUM
     Indication: PRODUCT USED FOR UNKNOWN INDICATION
     Dosage: 75 ?G, QD (IN MORNING)
     Route: 065
  6. PALBOCICLIB [Suspect]
     Active Substance: PALBOCICLIB
     Indication: BREAST CANCER
     Dosage: 125 MG, CYCLIC (3 WEKS ON/1WEEK OFF)
     Route: 048

REACTIONS (6)
  - Burning sensation [Unknown]
  - Enterocolitis infectious [Recovered/Resolved]
  - Abdominal pain [Unknown]
  - Campylobacter test positive [Unknown]
  - Pyrexia [Unknown]
  - Diarrhoea [Unknown]

NARRATIVE: CASE EVENT DATE: 20171226
